FAERS Safety Report 7197992-7 (Version None)
Quarter: 2010Q4

REPORT INFORMATION
  Report Type: 
  Country: None (occurrence: None)
  Receive Date: 20101203
  Receipt Date: 20101122
  Transmission Date: 20110411
  Serious: Yes (Hospitalization)
  Sender: FDA-Public Use
  Company Number: 2010SP061885

PATIENT
  Age: 67 Year
  Sex: Female

DRUGS (10)
  1. TEMOZOLOMIDE [Suspect]
     Indication: OVARIAN CANCER
     Dates: start: 20101012, end: 20101016
  2. PEGYLATED LIPOSOMAL DOXORUBICIN HCL [Suspect]
     Indication: OVARIAN CANCER
     Dosage: 90 MG, IV; 72 MG, IV
     Route: 042
     Dates: start: 20100803, end: 20100803
  3. PEGYLATED LIPOSOMAL DOXORUBICIN HCL [Suspect]
     Indication: OVARIAN CANCER
     Dosage: 90 MG, IV; 72 MG, IV
     Route: 042
     Dates: start: 20100831, end: 20100831
  4. ABT-888 [Suspect]
     Indication: OVARIAN CANCER
     Dosage: 40 MG, PO
     Route: 048
     Dates: start: 20101012, end: 20101018
  5. LEVOTHYROXINE SODIUM [Concomitant]
  6. CANDESARTAN CILEXETIL [Concomitant]
  7. PYRIDOXINE HYDROCHLORIDE [Concomitant]
  8. DUCOSATE [Concomitant]
  9. CARBOPLATIN [Concomitant]
  10. TAXOL [Concomitant]

REACTIONS (2)
  - PLATELET COUNT DECREASED [None]
  - RECTAL HAEMORRHAGE [None]
